FAERS Safety Report 6306716-4 (Version None)
Quarter: 2009Q3

REPORT INFORMATION
  Report Type: 
  Country: None (occurrence: None)
  Receive Date: 20090812
  Receipt Date: 20090527
  Transmission Date: 20100115
  Serious: No
  Sender: FDA-Public Use
  Company Number: A0786435A

PATIENT
  Age: 17 Year
  Sex: Male

DRUGS (2)
  1. VERAMYST [Suspect]
     Indication: SEASONAL ALLERGY
     Route: 045
     Dates: start: 20090511
  2. ZYRTEC [Concomitant]

REACTIONS (2)
  - HEADACHE [None]
  - OVERDOSE [None]
